FAERS Safety Report 14655458 (Version 7)
Quarter: 2018Q3

REPORT INFORMATION
  Report Type: Report from Study
  Country: CA (occurrence: CA)
  Receive Date: 20180319
  Receipt Date: 20180925
  Transmission Date: 20181010
  Serious: Yes (Other)
  Sender: FDA-Public Use
  Company Number: CA-SA-2017SA251148

PATIENT
  Age: 54 Year
  Sex: Female

DRUGS (12)
  1. ALEMTUZUMAB [Suspect]
     Active Substance: ALEMTUZUMAB
     Dosage: 12 MG,QD
     Route: 041
     Dates: start: 20171204, end: 20171206
  2. REACTINE [CETIRIZINE HYDROCHLORIDE] [Concomitant]
     Active Substance: CETIRIZINE HYDROCHLORIDE
     Indication: PREMEDICATION
     Dosage: 10 MG,UNK
     Route: 048
     Dates: start: 20171204, end: 20171212
  3. PARACETAMOL [Concomitant]
     Active Substance: ACETAMINOPHEN
     Dosage: UNK UNK,PRN
     Route: 048
  4. GRAVOL [Concomitant]
     Active Substance: DIMENHYDRINATE
     Indication: PREMEDICATION
     Dosage: 50 MG
     Route: 048
     Dates: start: 20171204, end: 20171212
  5. ACICLOVIR [Concomitant]
     Active Substance: ACYCLOVIR
     Indication: PREMEDICATION
     Dosage: 200 MG,BID
     Route: 048
     Dates: start: 20171204
  6. SOLU?MEDROL [Suspect]
     Active Substance: METHYLPREDNISOLONE SODIUM SUCCINATE
     Indication: PREMEDICATION
     Dosage: 1 G
     Route: 042
     Dates: start: 20171204, end: 20171206
  7. MODAFINIL. [Concomitant]
     Active Substance: MODAFINIL
     Dosage: QD
     Route: 048
  8. BENADRYL [Concomitant]
     Active Substance: DIPHENHYDRAMINE HYDROCHLORIDE
     Indication: PREMEDICATION
     Dosage: 50 MG
     Route: 048
     Dates: start: 20171204, end: 20171212
  9. PARACETAMOL [Concomitant]
     Active Substance: ACETAMINOPHEN
     Indication: PREMEDICATION
     Dosage: 975 MG,
     Route: 048
     Dates: start: 20171204
  10. ALEMTUZUMAB [Suspect]
     Active Substance: ALEMTUZUMAB
     Dosage: 12 MG,QD
     Route: 041
     Dates: start: 20171211, end: 20171212
  11. RANITIDINE. [Concomitant]
     Active Substance: RANITIDINE
     Indication: PREMEDICATION
     Dosage: 150 MG
     Route: 048
     Dates: start: 20171204, end: 20171212
  12. ERGOCALCIFEROL. [Concomitant]
     Active Substance: ERGOCALCIFEROL
     Dosage: QD
     Route: 048

REACTIONS (27)
  - Lymphocyte count decreased [Not Recovered/Not Resolved]
  - Microcytosis [Not Recovered/Not Resolved]
  - Red blood cell count increased [Not Recovered/Not Resolved]
  - Monocyte count decreased [Recovered/Resolved]
  - Hypertension [Recovered/Resolved]
  - Asthenia [Recovered/Resolved]
  - Mean cell haemoglobin decreased [Not Recovered/Not Resolved]
  - Urine leukocyte esterase positive [Recovered/Resolved]
  - Eosinophil count increased [Recovered/Resolved]
  - White blood cells urine positive [Not Recovered/Not Resolved]
  - Red blood cells urine positive [Recovered/Resolved]
  - White blood cell count abnormal [Recovered/Resolved]
  - Gait disturbance [Not Recovered/Not Resolved]
  - Leukopenia [Recovered/Resolved]
  - White blood cell count decreased [Recovered/Resolved]
  - Hemiparesis [Not Recovered/Not Resolved]
  - Viral infection [Not Recovered/Not Resolved]
  - Malaise [Not Recovered/Not Resolved]
  - Neutropenia [Recovered/Resolved]
  - Neutrophil count decreased [Recovered/Resolved]
  - Blood urine present [Not Recovered/Not Resolved]
  - Mean cell volume decreased [Not Recovered/Not Resolved]
  - Urinary sediment present [Recovered/Resolved]
  - Crystal urine present [Not Recovered/Not Resolved]
  - Urine abnormality [Not Recovered/Not Resolved]
  - Red cell distribution width increased [Not Recovered/Not Resolved]
  - Pyrexia [Recovered/Resolved]

NARRATIVE: CASE EVENT DATE: 20171204
